FAERS Safety Report 5679373 (Version 3)
Quarter: 2020Q1

REPORT INFORMATION
  Report Type: Spontaneous
  Country: DE (occurrence: DE)
  Receive Date: 20041122
  Receipt Date: 20200206
  Transmission Date: 20200409
  Serious: Yes (Life-Threatening, Hospitalization)
  Sender: FDA-Public Use
  Company Number: DE-ROCHE-386165

PATIENT
  Age: 53 Year
  Sex: Male

DRUGS (11)
  1. AMOXICLAV [Concomitant]
     Active Substance: AMOXICILLIN\CLAVULANATE POTASSIUM
     Route: 048
  2. CLONT [METRONIDAZOLE] [Concomitant]
     Active Substance: METRONIDAZOLE
     Route: 065
  3. DECORTIN H [Concomitant]
     Active Substance: PREDNISOLONE
     Route: 048
  4. SANDIMMUN [Concomitant]
     Active Substance: CYCLOSPORINE
     Indication: PROPHYLAXIS AGAINST TRANSPLANT REJECTION
     Route: 065
  5. KALINOR [CITRIC ACID;POTASSIUM BICARBONATE;POTASSIUM CITRATE] [Concomitant]
     Active Substance: CITRIC ACID MONOHYDRATE\POTASSIUM BICARBONATE\POTASSIUM CITRATE
     Route: 065
  6. FLOXAL [Concomitant]
     Active Substance: OFLOXACIN
     Route: 047
  7. PANTOPRAZOL [PANTOPRAZOLE] [Concomitant]
     Active Substance: PANTOPRAZOLE
     Route: 048
  8. DEXAMETHASONE. [Concomitant]
     Active Substance: DEXAMETHASONE
     Route: 065
  9. CELLCEPT [Suspect]
     Active Substance: MYCOPHENOLATE MOFETIL\MYCOPHENOLATE MOFETIL HYDROCHLORIDE
     Indication: PROPHYLAXIS AGAINST TRANSPLANT REJECTION
     Route: 065
     Dates: start: 20040824
  10. AZOPT [Concomitant]
     Active Substance: BRINZOLAMIDE
     Route: 047
  11. HEALON [Concomitant]
     Active Substance: HYALURONATE SODIUM
     Route: 047

REACTIONS (2)
  - Embolism [Not Recovered/Not Resolved]
  - Perforated ulcer [Recovered/Resolved with Sequelae]

NARRATIVE: CASE EVENT DATE: 20040914
